FAERS Safety Report 7112380-7 (Version None)
Quarter: 2010Q4

REPORT INFORMATION
  Report Type: 
  Country: None (occurrence: None)
  Receive Date: 20101119
  Receipt Date: 20100928
  Transmission Date: 20110411
  Serious: No
  Sender: FDA-Public Use
  Company Number: A0883755A

PATIENT
  Sex: Male

DRUGS (2)
  1. AVODART [Suspect]
     Indication: BENIGN PROSTATIC HYPERPLASIA
  2. JALYN [Suspect]
     Indication: BENIGN PROSTATIC HYPERPLASIA

REACTIONS (4)
  - DECREASED APPETITE [None]
  - ERECTILE DYSFUNCTION [None]
  - HOT FLUSH [None]
  - LOSS OF LIBIDO [None]
